FAERS Safety Report 17893240 (Version 4)
Quarter: 2020Q3

REPORT INFORMATION
  Report Type: Spontaneous
  Country: JP (occurrence: JP)
  Receive Date: 20200614
  Receipt Date: 20200708
  Transmission Date: 20201103
  Serious: Yes (Hospitalization, Other)
  Sender: FDA-Public Use
  Company Number: JP-009507513-2006JPN000825J

PATIENT
  Age: 31 Year
  Sex: Male

DRUGS (1)
  1. PROPECIA [Suspect]
     Active Substance: FINASTERIDE
     Indication: ANDROGENETIC ALOPECIA
     Dosage: UNK
     Route: 048
     Dates: start: 2015, end: 20200608

REACTIONS (4)
  - Cerebellar infarction [Unknown]
  - Polycythaemia [Unknown]
  - Hepatic function abnormal [Recovering/Resolving]
  - Myeloproliferative neoplasm [Unknown]

NARRATIVE: CASE EVENT DATE: 201904
